FAERS Safety Report 19071898 (Version 1)
Quarter: 2021Q1

REPORT INFORMATION
  Report Type: Report from Study
  Country: EG (occurrence: EG)
  Receive Date: 20210330
  Receipt Date: 20210330
  Transmission Date: 20210420
  Serious: Yes (Other)
  Sender: FDA-Public Use
  Company Number: NVSC2021EG070317

PATIENT
  Age: 13 Year
  Sex: Female
  Weight: 73 kg

DRUGS (1)
  1. OMNITROPE [Suspect]
     Active Substance: SOMATROPIN
     Indication: GROWTH HORMONE DEFICIENCY
     Dosage: 2.5 MG, QD, IT WAS INCREASING ACCORDING TO THE NORMAL WEIGHT GAIN
     Route: 058
     Dates: start: 20190505

REACTIONS (2)
  - Abnormal weight gain [Not Recovered/Not Resolved]
  - Cardiac septal defect [Not Recovered/Not Resolved]
